FAERS Safety Report 8401393 (Version 2)
Quarter: 2012Q4

REPORT INFORMATION
  Report Type: 
  Country: FR (occurrence: FR)
  Receive Date: 20120210
  Receipt Date: 20120911
  Transmission Date: 20130627
  Serious: Yes (Other)
  Sender: FDA-Public Use
  Company Number: FR-PFIZER INC-2012032825

PATIENT
  Age: 54 Year
  Sex: Female

DRUGS (5)
  1. LYRICA [Suspect]
     Indication: NEURALGIA
     Dosage: 75 mg, 2x/day
     Route: 048
     Dates: start: 20120130
  2. OXYCODONE [Concomitant]
     Dosage: UNK
  3. ACUPAN [Concomitant]
     Dosage: UNK
  4. MIANSERIN [Concomitant]
     Dosage: UNK
  5. PARACETAMOL [Concomitant]
     Dosage: UNK

REACTIONS (1)
  - Hepatocellular injury [Recovering/Resolving]
